FAERS Safety Report 13858217 (Version 1)
Quarter: 2017Q3

REPORT INFORMATION
  Report Type: Spontaneous
  Country: US (occurrence: US)
  Receive Date: 20170810
  Receipt Date: 20170810
  Transmission Date: 20171127
  Serious: Yes (Disabling)
  Sender: FDA-Public Use
  Company Number: None

PATIENT
  Age: 51 Year
  Sex: Female
  Weight: 87.75 kg

DRUGS (10)
  1. SYNTHROID [Concomitant]
     Active Substance: LEVOTHYROXINE SODIUM
  2. VANCOMYCIN [Concomitant]
     Active Substance: VANCOMYCIN
  3. TRULICITY [Concomitant]
     Active Substance: DULAGLUTIDE
  4. CLARITHOMYCIN 250MG [Concomitant]
     Active Substance: CLARITHROMYCIN
  5. MALARONE [Concomitant]
     Active Substance: ATOVAQUONE\PROGUANIL HYDROCHLORIDE
  6. PROTONIX [Concomitant]
     Active Substance: PANTOPRAZOLE SODIUM
  7. SPIRONOLACTONE. [Suspect]
     Active Substance: SPIRONOLACTONE
     Indication: HYPERTENSION
     Dosage: ?          QUANTITY:1 TABLET(S);?
     Route: 048
     Dates: start: 20170808, end: 20170809
  8. SPIRONOLACTONE. [Suspect]
     Active Substance: SPIRONOLACTONE
     Indication: LIDDLE^S SYNDROME
     Dosage: ?          QUANTITY:1 TABLET(S);?
     Route: 048
     Dates: start: 20170808, end: 20170809
  9. AMRYAL [Concomitant]
  10. K-DUR [Concomitant]
     Active Substance: POTASSIUM CHLORIDE

REACTIONS (10)
  - Somnolence [None]
  - Dizziness [None]
  - Vomiting [None]
  - Tachycardia [None]
  - Dyspnoea [None]
  - Blood pressure increased [None]
  - Headache [None]
  - Malaise [None]
  - Fatigue [None]
  - Extrasystoles [None]

NARRATIVE: CASE EVENT DATE: 20170810
